FAERS Safety Report 9619929 (Version 1)
Quarter: 2013Q4

REPORT INFORMATION
  Report Type: Spontaneous
  Country: FI (occurrence: FI)
  Receive Date: 20131014
  Receipt Date: 20131014
  Transmission Date: 20140711
  Serious: Yes (Death)
  Sender: FDA-Public Use
  Company Number: FI-TEVA-435532ISR

PATIENT
  Sex: Male

DRUGS (1)
  1. FENTANYL [Suspect]
     Route: 042
     Dates: start: 201110, end: 201110

REACTIONS (2)
  - Drug abuse [Fatal]
  - Death [Fatal]
